FAERS Safety Report 7743360-6 (Version None)
Quarter: 2011Q3

REPORT INFORMATION
  Report Type: 
  Country: None (occurrence: None)
  Receive Date: 20110826
  Receipt Date: 20110819
  Transmission Date: 20111222
  Serious: Yes (Other)
  Sender: FDA-Public Use
  Company Number: DSA_47091_2011

PATIENT
  Sex: Female
  Weight: 105.6881 kg

DRUGS (11)
  1. ESTROGENIC SUBSTANCE [Concomitant]
  2. UNSPECIFIED CHOLESTEROL MEDICATION [Concomitant]
  3. BACLOFEN [Concomitant]
  4. ASPIRIN [Concomitant]
  5. KLONOPIN [Concomitant]
  6. NORVASC [Concomitant]
  7. LANTUS [Concomitant]
  8. OMEPRAZOLE [Concomitant]
  9. METFORMIN HYDROCHLORIDE [Concomitant]
  10. XENAZINE [Suspect]
     Indication: DYSTONIA
     Dosage: 12.5 MG TID ORAL
     Route: 048
     Dates: start: 20110501, end: 20110801
  11. POTASSIUM [Concomitant]

REACTIONS (4)
  - MUSCLE SPASMS [None]
  - PAIN [None]
  - BLOOD PRESSURE INCREASED [None]
  - BLOOD GLUCOSE INCREASED [None]
